FAERS Safety Report 24746637 (Version 2)
Quarter: 2025Q1

REPORT INFORMATION
  Report Type: Report from Study
  Country: US (occurrence: US)
  Receive Date: 20241218
  Receipt Date: 20250210
  Transmission Date: 20250409
  Serious: Yes (Other)
  Sender: ACADIA PHARMACEUTICALS
  Company Number: US-ACADIA PHARMACEUTICALS INC.-ACA-2024-PIM-008153

PATIENT
  Sex: Male

DRUGS (14)
  1. NUPLAZID [Suspect]
     Active Substance: PIMAVANSERIN TARTRATE
     Indication: Parkinson^s disease
     Dosage: 34 MILLIGRAM, QD
     Route: 048
     Dates: start: 20241112
  2. NUPLAZID [Suspect]
     Active Substance: PIMAVANSERIN TARTRATE
     Indication: Psychotic disorder
  3. NUPLAZID [Suspect]
     Active Substance: PIMAVANSERIN TARTRATE
     Indication: Hallucination
  4. CALCIUM [Concomitant]
     Active Substance: CALCIUM
  5. CARBIDOPA\LEVODOPA [Concomitant]
     Active Substance: CARBIDOPA\LEVODOPA
  6. FISH OIL [Concomitant]
     Active Substance: FISH OIL
  7. LEXAPRO [Concomitant]
     Active Substance: ESCITALOPRAM OXALATE
  8. LINZESS [Concomitant]
     Active Substance: LINACLOTIDE
  9. MAGNESIUM [Concomitant]
     Active Substance: MAGNESIUM
  10. MEMANTINE [Concomitant]
     Active Substance: MEMANTINE
  11. VITAMINS NOS [Concomitant]
     Active Substance: VITAMINS
  12. RIVASTIGMINE [Concomitant]
     Active Substance: RIVASTIGMINE
  13. VITAMIN D3 [Concomitant]
     Active Substance: CHOLECALCIFEROL
  14. FLUDROCORTISONE [Concomitant]
     Active Substance: FLUDROCORTISONE

REACTIONS (3)
  - Hallucination [Unknown]
  - Constipation [Unknown]
  - Confusional state [Unknown]
